FAERS Safety Report 5196036-6 (Version None)
Quarter: 2006Q4

REPORT INFORMATION
  Report Type: 
  Country: None (occurrence: None)
  Receive Date: 20061227
  Receipt Date: 20061213
  Transmission Date: 20070319
  Serious: Yes (Hospitalization)
  Sender: FDA-Public Use
  Company Number: 2006AP001153

PATIENT
  Age: 76 Year
  Sex: Female

DRUGS (3)
  1. TICLOPIDINE HCL [Suspect]
     Indication: CEREBRAL THROMBOSIS
     Dosage: 250 MG; BID PO
     Route: 048
  2. BISOPROLOL FUMARATE [Concomitant]
  3. DIGOXIN [Concomitant]

REACTIONS (4)
  - ANAEMIA [None]
  - CUTANEOUS LUPUS ERYTHEMATOSUS [None]
  - HAEMATURIA [None]
  - LEUKOPENIA [None]
